FAERS Safety Report 5286208-4 (Version None)
Quarter: 2007Q2

REPORT INFORMATION
  Report Type: 
  Country: None (occurrence: None)
  Receive Date: 20070403
  Receipt Date: 20070403
  Transmission Date: 20071010
  Serious: Yes (Hospitalization)
  Sender: FDA-Public Use
  Company Number: None

PATIENT
  Sex: Male
  Weight: 89.3586 kg

DRUGS (13)
  1. LENALIDOMIDE 15MGS CELGENE [Suspect]
     Indication: PROSTATE CANCER
     Dosage: 15MG QD PO
     Route: 048
     Dates: start: 20060815, end: 20070313
  2. TAXOTERE [Suspect]
     Indication: PROSTATE CANCER
     Dosage: 75 MG/M2 Q THREE WEEKS IV DRIP
     Route: 041
     Dates: start: 20060815, end: 20070313
  3. ASPIRIN [Concomitant]
  4. ATENOLOL [Concomitant]
  5. ELDEPRYL [Concomitant]
  6. GLUCOPHAGE [Concomitant]
  7. GLUCOTROL [Concomitant]
  8. MIRAPEX [Concomitant]
  9. MONOPRIL [Concomitant]
  10. PREDNISONE TAB [Concomitant]
  11. SPIRONOLACTONE [Concomitant]
  12. SIMVASTATIN [Concomitant]
  13. ZOLADEX [Concomitant]

REACTIONS (6)
  - CLOSTRIDIUM DIFFICILE TOXIN TEST POSITIVE [None]
  - CONDITION AGGRAVATED [None]
  - DIARRHOEA [None]
  - LOBAR PNEUMONIA [None]
  - NEUTROPENIC SEPSIS [None]
  - PARKINSON'S DISEASE [None]
